FAERS Safety Report 9013395 (Version 2)
Quarter: 2013Q1

REPORT INFORMATION
  Report Type: Spontaneous
  Country: US (occurrence: US)
  Receive Date: 20130114
  Receipt Date: 20130326
  Transmission Date: 20140127
  Serious: Yes (Hospitalization)
  Sender: FDA-Public Use
  Company Number: US-BAYER-2013-002328

PATIENT
  Age: 22 Year
  Sex: Female
  Weight: 123.81 kg

DRUGS (25)
  1. YASMIN [Suspect]
     Indication: ACNE
  2. YAZ [Suspect]
     Indication: ACNE
  3. OCELLA [Suspect]
     Indication: ACNE
  4. LORTAB [Concomitant]
     Indication: HEADACHE
     Dosage: 5 MG - 7.5 MG
     Route: 048
  5. LORTAB [Concomitant]
     Indication: PAIN
  6. SEROQUEL [Concomitant]
     Dosage: 200 MG, DAILY
     Route: 048
  7. VERAPAMIL [Concomitant]
     Dosage: 180 MG, UNK
  8. ZOLOFT [Concomitant]
     Indication: DEPRESSION
     Dosage: 200 MG, UNK
     Route: 048
  9. ZOMAGRAM [Concomitant]
  10. DALMANE [Concomitant]
     Dosage: 30 MG, UNK
  11. THORAZINE [Concomitant]
     Indication: HEADACHE
     Dosage: 50 MG, UNK
     Route: 030
  12. PHENERGAN [Concomitant]
     Indication: HEADACHE
     Dosage: 25 MG, UNK
  13. PHENERGAN [Concomitant]
     Indication: NAUSEA
  14. METFORMIN [Concomitant]
     Dosage: 500 MG, UNK
  15. FLEXERIL [Concomitant]
     Indication: SLEEP DISORDER THERAPY
     Dosage: 10 MG, HS
  16. COMPAZINE [Concomitant]
     Indication: MIGRAINE
     Dosage: 10 MG, UNK
     Route: 042
     Dates: start: 20070708
  17. DIHYDROERGOTAMINE [Concomitant]
     Indication: MIGRAINE
     Dosage: 1 MG, UNK
     Route: 042
     Dates: start: 20070708
  18. PROTONIX [Concomitant]
     Indication: HYPERCHLORHYDRIA
     Dosage: 40 MG, DAILY
     Route: 048
  19. GUAIFENESIN W/DEXTROMETHORPHAN [Concomitant]
     Dosage: UNK
     Dates: start: 20070708
  20. FLONASE [Concomitant]
     Indication: COUGH
     Dosage: 50 ?G, UNK
     Route: 045
     Dates: start: 20070708
  21. OMNICEF [Concomitant]
     Indication: SINUSITIS
     Dosage: 300 MG, BID
     Route: 048
     Dates: start: 20070708
  22. REGLAN [Concomitant]
     Indication: NAUSEA
     Dosage: 10 MG, UNK
     Route: 042
     Dates: start: 20070708
  23. ZOFRAN [Concomitant]
     Indication: NAUSEA
     Dosage: 4 MG, UNK
     Route: 042
     Dates: start: 20070708
  24. TRAZODONE [Concomitant]
     Dosage: 200 MG, HS
     Route: 048
  25. LEVAQUIN [Concomitant]
     Dosage: 750 MG, DAILY
     Route: 042
     Dates: start: 20070709

REACTIONS (5)
  - Cholecystitis [None]
  - Pulmonary embolism [Recovered/Resolved]
  - Injury [None]
  - Pain [None]
  - Pain [None]
